FAERS Safety Report 19069249 (Version 1)
Quarter: 2021Q1

REPORT INFORMATION
  Report Type: Spontaneous
  Country: FR (occurrence: FR)
  Receive Date: 20210329
  Receipt Date: 20210329
  Transmission Date: 20210420
  Serious: Yes (Hospitalization)
  Sender: FDA-Public Use
  Company Number: FR-ALSI-2021000081

PATIENT
  Age: 27 Year
  Sex: Male

DRUGS (1)
  1. NITROUS OXIDE. [Suspect]
     Active Substance: NITROUS OXIDE
     Indication: DRUG ABUSE
     Route: 055
     Dates: start: 20201102, end: 20210113

REACTIONS (4)
  - Blood homocysteine increased [Recovering/Resolving]
  - Myelopathy [Recovering/Resolving]
  - Drug abuse [Recovered/Resolved]
  - Hypovitaminosis [Recovering/Resolving]
